FAERS Safety Report 17577294 (Version 1)
Quarter: 2020Q1

REPORT INFORMATION
  Report Type: Report from Study
  Country: ES (occurrence: ES)
  Receive Date: 20200324
  Receipt Date: 20200324
  Transmission Date: 20200409
  Serious: Yes (Hospitalization)
  Sender: FDA-Public Use
  Company Number: ES-MYLANLABS-2020M1029985

PATIENT
  Age: 78 Year
  Sex: Female

DRUGS (6)
  1. FUROSEMIDE. [Interacting]
     Active Substance: FUROSEMIDE
     Indication: HYPERTENSION
     Dosage: 80 MILLIGRAM, QD
     Route: 048
     Dates: start: 20190131, end: 20190910
  2. HIDROCLOROTIAZIDA [Interacting]
     Active Substance: HYDROCHLOROTHIAZIDE
     Indication: OEDEMA PERIPHERAL
     Dosage: UNK
     Route: 048
     Dates: start: 20181119, end: 20190910
  3. METFORMIN [Concomitant]
     Active Substance: METFORMIN HYDROCHLORIDE
     Indication: TYPE 2 DIABETES MELLITUS
     Dosage: 1.7 GRAM, QD
     Route: 048
     Dates: start: 20190131, end: 20190910
  4. BOSUTINIB [Concomitant]
     Active Substance: BOSUTINIB
     Indication: CHRONIC MYELOID LEUKAEMIA
     Dosage: 400 MILLIGRAM, QD
     Route: 048
     Dates: start: 20180306, end: 20190916
  5. PRAVASTATINA SODICA [Concomitant]
     Active Substance: PRAVASTATIN SODIUM
     Indication: DYSLIPIDAEMIA
     Dosage: 40 MILLIGRAM, QD
     Route: 048
     Dates: start: 20181119, end: 20190910
  6. IBUPROFEN. [Suspect]
     Active Substance: IBUPROFEN
     Indication: VIRAL UPPER RESPIRATORY TRACT INFECTION
     Dosage: 600 MILLIGRAM, QOD
     Route: 048
     Dates: start: 20190906, end: 20190910

REACTIONS (2)
  - Acute kidney injury [Recovered/Resolved]
  - Drug interaction [Unknown]

NARRATIVE: CASE EVENT DATE: 20190910
